FAERS Safety Report 5281550-5 (Version None)
Quarter: 2007Q1

REPORT INFORMATION
  Report Type: 
  Country: None (occurrence: None)
  Receive Date: 20070323
  Receipt Date: 20070323
  Transmission Date: 20070707
  Serious: Yes (Hospitalization)
  Sender: FDA-Public Use
  Company Number: None

PATIENT
  Sex: Male

DRUGS (1)
  1. WINRHO [Suspect]
     Dosage: 20,568 UNITS IV
     Route: 042
     Dates: start: 20070209

REACTIONS (6)
  - CHEST DISCOMFORT [None]
  - CHEST PAIN [None]
  - CHILLS [None]
  - ERUCTATION [None]
  - INFUSION RELATED REACTION [None]
  - MUSCLE SPASMS [None]
